FAERS Safety Report 5890707-1 (Version None)
Quarter: 2008Q3

REPORT INFORMATION
  Report Type: 
  Country: None (occurrence: None)
  Receive Date: 20080922
  Receipt Date: 20080909
  Transmission Date: 20090109
  Serious: Yes (Hospitalization)
  Sender: FDA-Public Use
  Company Number: GB-ROCHE-580468

PATIENT
  Age: 7 Year
  Sex: Female

DRUGS (6)
  1. MYCOPHENOLATE MOFETIL [Suspect]
     Indication: EVANS SYNDROME
     Route: 065
  2. RITUXIMAB [Suspect]
     Indication: EVANS SYNDROME
     Route: 041
  3. RITUXIMAB [Suspect]
     Indication: LYMPHOPROLIFERATIVE DISORDER
     Route: 065
  4. CYCLOSPORINE [Suspect]
     Indication: EVANS SYNDROME
     Route: 065
  5. IMMUNE GLOBULIN INTRAVENOUS (HUMAN) [Suspect]
     Indication: EVANS SYNDROME
     Route: 041
  6. PREDNISOLONE [Suspect]
     Indication: EVANS SYNDROME
     Route: 065

REACTIONS (7)
  - ANOREXIA [None]
  - COUGH [None]
  - DILATATION VENTRICULAR [None]
  - LYMPHOPROLIFERATIVE DISORDER [None]
  - OXYGEN SATURATION DECREASED [None]
  - PULMONARY HYPERTENSION [None]
  - TRICUSPID VALVE INCOMPETENCE [None]
